FAERS Safety Report 23082165 (Version 1)
Quarter: 2023Q4

REPORT INFORMATION
  Report Type: Report from Study
  Country: US (occurrence: US)
  Receive Date: 20231019
  Receipt Date: 20231019
  Transmission Date: 20240109
  Serious: Yes (Hospitalization, Other)
  Sender: FDA-Public Use
  Company Number: PV-GXP-040-V3

PATIENT
  Age: 22 Year
  Sex: Male
  Weight: 58.2 kg

DRUGS (1)
  1. EPIDIOLEX [Suspect]
     Active Substance: CANNABIDIOL
     Indication: Illness
     Dosage: 4.5 MILLILITER, BID
     Route: 048

REACTIONS (4)
  - Infection [Unknown]
  - Surgery [Unknown]
  - Surgery [Unknown]
  - Deep brain stimulation [Unknown]

NARRATIVE: CASE EVENT DATE: 20230713
